FAERS Safety Report 5633156-3 (Version None)
Quarter: 2008Q1

REPORT INFORMATION
  Report Type: 
  Country: None (occurrence: None)
  Receive Date: 20080221
  Receipt Date: 20080212
  Transmission Date: 20080703
  Serious: Yes (Disabling)
  Sender: FDA-Public Use
  Company Number: FR-ASTRAZENECA-2008CG00261

PATIENT
  Age: 583 Month
  Sex: Female

DRUGS (5)
  1. NEXIUM [Suspect]
     Indication: GASTROOESOPHAGEAL REFLUX DISEASE
     Route: 048
     Dates: start: 20040101, end: 20071119
  2. NEXIUM [Suspect]
     Route: 048
     Dates: start: 20071119, end: 20080120
  3. NEXIUM [Suspect]
     Route: 048
     Dates: start: 20080120
  4. HYTACAND [Concomitant]
     Indication: HYPERTENSION
     Route: 048
     Dates: end: 20071201
  5. DETENSIEL [Concomitant]
     Indication: HYPERTENSION
     Dates: start: 20071201

REACTIONS (5)
  - ABDOMINAL PAIN [None]
  - APHONIA [None]
  - PNEUMONIA [None]
  - TRACHEAL DISORDER [None]
  - VISION BLURRED [None]
